FAERS Safety Report 9530864 (Version 1)
Quarter: 2013Q3

REPORT INFORMATION
  Report Type: Report from Study
  Country: GB (occurrence: GB)
  Receive Date: 20130918
  Receipt Date: 20130918
  Transmission Date: 20140515
  Serious: Yes (Hospitalization)
  Sender: FDA-Public Use
  Company Number: GB-ROCHE-1274863

PATIENT
  Age: 83 Year
  Sex: Male

DRUGS (17)
  1. RITUXIMAB [Suspect]
     Indication: CHRONIC LYMPHOCYTIC LEUKAEMIA
     Route: 042
     Dates: start: 20130904
  2. BLINDED GS-1101 [Suspect]
     Indication: CHRONIC LYMPHOCYTIC LEUKAEMIA
     Route: 048
     Dates: start: 20130904
  3. BENDAMUSTINA [Suspect]
     Indication: CHRONIC LYMPHOCYTIC LEUKAEMIA
     Route: 042
     Dates: start: 20130904
  4. RANITIDINE [Concomitant]
     Route: 065
     Dates: start: 20130821, end: 20130822
  5. N-ACETYLCYSTEINE [Concomitant]
     Route: 065
     Dates: start: 20130821, end: 20130822
  6. LANSOPRAZOLE [Concomitant]
     Route: 065
     Dates: start: 2013
  7. ACYCLOVIR [Concomitant]
     Route: 065
     Dates: start: 2013
  8. PARACETAMOL [Concomitant]
     Route: 065
     Dates: start: 20130904
  9. CHLORPHENAMINE [Concomitant]
  10. CO-TRIMAZOLE [Concomitant]
     Route: 065
     Dates: start: 2013
  11. ALENDRONIC ACID [Concomitant]
     Route: 065
     Dates: start: 2013
  12. FLUCONAZOLE [Concomitant]
     Route: 065
     Dates: start: 2013
  13. DOMPERIDONE [Concomitant]
     Route: 065
     Dates: start: 20130904
  14. ONDANSETRON [Concomitant]
     Route: 065
     Dates: start: 20130904
  15. DALTEPARIN [Concomitant]
     Route: 065
     Dates: start: 20130827, end: 20130829
  16. RASBURICASE [Concomitant]
     Route: 065
     Dates: start: 20130827, end: 20130829
  17. DEXAMETHASONE [Concomitant]
     Route: 065
     Dates: start: 20130824, end: 20130827

REACTIONS (1)
  - Blood creatinine increased [Not Recovered/Not Resolved]
